FAERS Safety Report 5849112-6 (Version None)
Quarter: 2008Q3

REPORT INFORMATION
  Report Type: 
  Country: None (occurrence: None)
  Receive Date: 20080815
  Receipt Date: 20080808
  Transmission Date: 20090109
  Serious: Yes (Other)
  Sender: FDA-Public Use
  Company Number: ADE2008-0266

PATIENT
  Age: 37 Year
  Sex: Male

DRUGS (1)
  1. FINASTERIDE [Suspect]
     Indication: ALOPECIA
     Dosage: 1 MG - QD- ORAL
     Route: 048
     Dates: start: 20080101, end: 20080101

REACTIONS (4)
  - BLOOD TESTOSTERONE DECREASED [None]
  - ERECTILE DYSFUNCTION [None]
  - PENILE SIZE REDUCED [None]
  - TESTICULAR ATROPHY [None]
